FAERS Safety Report 8560674-0 (Version None)
Quarter: 2012Q3

REPORT INFORMATION
  Report Type: 
  Country: None (occurrence: None)
  Receive Date: 20120802
  Receipt Date: 20120731
  Transmission Date: 20120928
  Serious: No
  Sender: FDA-Public Use
  Company Number: US-PFIZER INC-2012186213

PATIENT
  Sex: Female
  Weight: 81.633 kg

DRUGS (6)
  1. EFFEXOR XR [Suspect]
     Indication: ANXIETY
     Dosage: 50 MG, 1X/DAY
     Route: 048
     Dates: start: 20010101, end: 20020101
  2. EFFEXOR XR [Suspect]
     Dosage: 75 MG, 1X/DAY
     Route: 048
     Dates: start: 20110101
  3. EFFEXOR XR [Suspect]
     Dosage: 37.5 MG, 2X/DAY
     Route: 048
  4. EFFEXOR XR [Suspect]
     Dosage: 37.5 MG, ALTERNATE DAY
     Route: 048
  5. EFFEXOR XR [Suspect]
     Indication: DEPRESSION
     Dosage: 50 MG, 1X/DAY
     Route: 048
     Dates: start: 20060101, end: 20110101
  6. EFFEXOR XR [Suspect]
     Dosage: 37.5 MG, 1X/DAY
     Route: 048

REACTIONS (4)
  - DIZZINESS [None]
  - FEELING ABNORMAL [None]
  - SOMNOLENCE [None]
  - ACTIVITIES OF DAILY LIVING IMPAIRED [None]
